FAERS Safety Report 23516193 (Version 2)
Quarter: 2024Q1

REPORT INFORMATION
  Report Type: Spontaneous
  Country: JP (occurrence: JP)
  Receive Date: 20240213
  Receipt Date: 20240221
  Transmission Date: 20240409
  Serious: Yes (Other)
  Sender: FDA-Public Use
  Company Number: JP-ASTELLAS-2024JP000341

PATIENT
  Age: 77 Year
  Sex: Male

DRUGS (6)
  1. XOSPATA [Suspect]
     Active Substance: GILTERITINIB
     Indication: Acute myeloid leukaemia refractory
     Route: 048
     Dates: start: 20240111
  2. XOSPATA [Suspect]
     Active Substance: GILTERITINIB
     Route: 048
     Dates: start: 20240209
  3. CYTARABINE [Suspect]
     Active Substance: CYTARABINE
     Indication: Product used for unknown indication
     Dosage: HIGH DOSE, UNKNOWN FREQ.
     Route: 065
     Dates: end: 20240114
  4. ITRACONAZOLE [Concomitant]
     Active Substance: ITRACONAZOLE
     Indication: Oral candidiasis
     Dosage: UNK UNK, UNKNOWN FREQ.
     Route: 065
     Dates: start: 20240111
  5. FLUCONAZOLE [Concomitant]
     Active Substance: FLUCONAZOLE
     Indication: Product used for unknown indication
     Dosage: UNK UNK, UNKNOWN FREQ.
     Route: 065
  6. VANCOMYCIN [Concomitant]
     Active Substance: VANCOMYCIN
     Indication: Product used for unknown indication
     Dosage: UNK UNK, UNKNOWN FREQ.
     Route: 065

REACTIONS (15)
  - Platelet disorder [Not Recovered/Not Resolved]
  - Brain neoplasm [Not Recovered/Not Resolved]
  - Cerebral haemorrhage [Not Recovered/Not Resolved]
  - Brain abscess [Not Recovered/Not Resolved]
  - Brain scan abnormal [Not Recovered/Not Resolved]
  - Fall [Recovered/Resolved]
  - White blood cell count decreased [Recovered/Resolved]
  - Haemoglobin decreased [Unknown]
  - Alanine aminotransferase increased [Unknown]
  - Blood creatine phosphokinase increased [Unknown]
  - Infection [Not Recovered/Not Resolved]
  - Renal impairment [Not Recovered/Not Resolved]
  - Pancytopenia [Not Recovered/Not Resolved]
  - Seizure [Unknown]
  - Product use issue [Recovered/Resolved]

NARRATIVE: CASE EVENT DATE: 20240111
